FAERS Safety Report 5418023-2 (Version None)
Quarter: 2007Q3

REPORT INFORMATION
  Report Type: 
  Country: None (occurrence: None)
  Receive Date: 20070817
  Receipt Date: 20061207
  Transmission Date: 20080115
  Serious: No
  Sender: FDA-Public Use
  Company Number: A0631025A

PATIENT

DRUGS (3)
  1. BEXXAR [Suspect]
     Indication: DRUG USE FOR UNKNOWN INDICATION
     Route: 042
  2. APAP TAB [Concomitant]
  3. BENADRYL [Concomitant]

REACTIONS (3)
  - DYSPNOEA [None]
  - INFUSION RELATED REACTION [None]
  - URTICARIA [None]
